FAERS Safety Report 9068959 (Version 1)
Quarter: 2013Q1

REPORT INFORMATION
  Report Type: Spontaneous
  Country: US (occurrence: None)
  Receive Date: 20130213
  Receipt Date: 20130213
  Transmission Date: 20140127
  Serious: No
  Sender: FDA-Public Use
  Company Number: None

PATIENT
  Age: 64 Year
  Sex: Male
  Weight: 85.9 kg

DRUGS (1)
  1. LISINOPRIL [Suspect]
     Indication: HYPERTENSION
     Route: 048
     Dates: start: 20121113, end: 20121207

REACTIONS (8)
  - Blood urea increased [None]
  - Blood potassium increased [None]
  - Chest pain [None]
  - Hypotension [None]
  - Dyspnoea [None]
  - Dizziness [None]
  - Asthenia [None]
  - Blood creatinine increased [None]
